FAERS Safety Report 14846333 (Version 10)
Quarter: 2021Q3

REPORT INFORMATION
  Report Type: Other
  Country: CA (occurrence: CA)
  Receive Date: 20180504
  Receipt Date: 20210709
  Transmission Date: 20211014
  Serious: Yes (Other)
  Sender: FDA-Public Use
  Company Number: CA-ROCHE-2116316

PATIENT
  Age: 35 Year
  Sex: Female
  Weight: 70 kg

DRUGS (4)
  1. VALTREX [Concomitant]
     Active Substance: VALACYCLOVIR HYDROCHLORIDE
     Indication: ORAL HERPES
     Route: 065
  2. FISH OIL [Concomitant]
     Active Substance: FISH OIL
  3. OCREVUS [Suspect]
     Active Substance: OCRELIZUMAB
     Indication: MULTIPLE SCLEROSIS
     Dosage: EVERY 6 MONTHS
     Route: 042
     Dates: start: 20180608
  4. OCREVUS [Suspect]
     Active Substance: OCRELIZUMAB
     Indication: RELAPSING-REMITTING MULTIPLE SCLEROSIS
     Dosage: 300 MG DAY 0, DAY 14 THEN 600 MG EVERY 6 MONTHS ONGOING: YES?NEXT INFUSION WAS RECEIVED ON 09/DEC/20
     Route: 042
     Dates: start: 20171109

REACTIONS (25)
  - Arthralgia [Unknown]
  - Wheezing [Not Recovered/Not Resolved]
  - Infusion related reaction [Recovered/Resolved]
  - Ear pruritus [Recovered/Resolved]
  - Fatigue [Unknown]
  - Pain [Not Recovered/Not Resolved]
  - Depression [Unknown]
  - Infusion related reaction [Recovered/Resolved]
  - Nausea [Unknown]
  - Dizziness [Recovered/Resolved]
  - Cough [Recovered/Resolved]
  - Pain [Not Recovered/Not Resolved]
  - Throat irritation [Recovered/Resolved]
  - Sinusitis [Not Recovered/Not Resolved]
  - Dry mouth [Not Recovered/Not Resolved]
  - Optic neuritis [Not Recovered/Not Resolved]
  - Bronchitis [Not Recovered/Not Resolved]
  - Arthralgia [Not Recovered/Not Resolved]
  - Visual impairment [Not Recovered/Not Resolved]
  - Nasal dryness [Not Recovered/Not Resolved]
  - Insomnia [Not Recovered/Not Resolved]
  - Fall [Unknown]
  - Nasopharyngitis [Recovered/Resolved]
  - Pain in extremity [Not Recovered/Not Resolved]
  - Rotator cuff syndrome [Unknown]

NARRATIVE: CASE EVENT DATE: 201808
